FAERS Safety Report 9524488 (Version 1)
Quarter: 2013Q1

REPORT INFORMATION
  Report Type: Spontaneous
  Country: US (occurrence: None)
  Receive Date: 20130305
  Receipt Date: 20130305
  Transmission Date: 20140127
  Serious: Yes (Other)
  Sender: FDA-Public Use
  Company Number: 163-21880-12022426

PATIENT
  Age: 71 Year
  Sex: Male
  Weight: 97.98 kg

DRUGS (22)
  1. REVLIMID [Suspect]
     Indication: PLASMA CELL MYELOMA
     Dosage: 25 MG, DAILY X 21 DAYS, 1 WEEK OFF, PO
     Dates: start: 20110801
  2. AMBIEN (ZOLPIDEM TARTRATE) [Concomitant]
  3. BACTRIM (BACTRIM) [Concomitant]
  4. COLACE (DOCUSATE SODIUM) [Concomitant]
  5. COREG (CARVEDILOL) [Concomitant]
  6. COUMADIN (WARFARIN SODIUM) [Concomitant]
  7. VITAMIN D (ERGOCALCIFEROL) [Concomitant]
  8. DECADRON (DEXAMETHASONE) [Concomitant]
  9. FENTANYL (FENTANYL) [Concomitant]
  10. PROCRIT [Concomitant]
  11. VITAMIN B12 (CYANOCOBALAMIN) [Concomitant]
  12. XANAX (ALPRAZOLAM) [Concomitant]
  13. ZOLOFT (SERTRALINE HYDROCHLORIDE) [Concomitant]
  14. ZOMETA (ZOLEDRONIC ACID) [Concomitant]
  15. ALLOPURINOL [Concomitant]
  16. CARAFATE (SUCRALFATE) [Concomitant]
  17. COLCHICINE (COLCHICINE) [Concomitant]
  18. DEXAMETHASONE (DEXAMETHASONE) [Concomitant]
  19. FLOMAX (TAMSULOSIN HYDROCHLORIDE) [Concomitant]
  20. OMEPRAZOLE (OMEPRAZOLE) [Concomitant]
  21. PERCOCET (OXYCOCET) [Concomitant]
  22. VICODIN (VICODIN) [Concomitant]

REACTIONS (1)
  - Pancytopenia [None]
